FAERS Safety Report 10486575 (Version 4)
Quarter: 2018Q2

REPORT INFORMATION
  Report Type: Spontaneous
  Country: US (occurrence: US)
  Receive Date: 20141001
  Receipt Date: 20180406
  Transmission Date: 20180711
  Serious: No
  Sender: FDA-Public Use
  Company Number: US-PFIZER INC-2014270678

PATIENT
  Age: 55 Year
  Sex: Female

DRUGS (1)
  1. NEURONTIN [Suspect]
     Active Substance: GABAPENTIN
     Indication: PAIN
     Dosage: 1200 MG, 3 TIMES A DAY

REACTIONS (2)
  - Drug ineffective [Unknown]
  - Drug ineffective for unapproved indication [Not Recovered/Not Resolved]

NARRATIVE: CASE EVENT DATE: 2005
